FAERS Safety Report 26122599 (Version 1)
Quarter: 2025Q4

REPORT INFORMATION
  Report Type: Spontaneous
  Country: US (occurrence: US)
  Receive Date: 20251204
  Receipt Date: 20251204
  Transmission Date: 20260118
  Serious: No
  Sender: PFIZER
  Company Number: US-PFIZER INC-202500234329

PATIENT
  Age: 58 Year
  Sex: Male

DRUGS (1)
  1. CIBINQO [Suspect]
     Active Substance: ABROCITINIB
     Dosage: UNK
     Dates: start: 202511, end: 202511

REACTIONS (1)
  - Medical device pain [Recovered/Resolved]

NARRATIVE: CASE EVENT DATE: 20251101
